FAERS Safety Report 23589539 (Version 2)
Quarter: 2024Q1

REPORT INFORMATION
  Report Type: Spontaneous
  Country: AR (occurrence: AR)
  Receive Date: 20240304
  Receipt Date: 20240318
  Transmission Date: 20240410
  Serious: Yes (Other)
  Sender: FDA-Public Use
  Company Number: AR-NOVOPROD-1179966

PATIENT
  Age: 69 Year
  Sex: Female
  Weight: 85 kg

DRUGS (6)
  1. OZEMPIC [Suspect]
     Active Substance: SEMAGLUTIDE
     Indication: Obesity
     Dosage: 1 MG, QW
     Dates: end: 20240101
  2. OZEMPIC [Suspect]
     Active Substance: SEMAGLUTIDE
     Indication: Hepatic fibrosis
  3. OZEMPIC [Suspect]
     Active Substance: SEMAGLUTIDE
     Indication: Hepatic steatosis
  4. OZEMPIC [Suspect]
     Active Substance: SEMAGLUTIDE
     Indication: Type 2 diabetes mellitus
     Dosage: UNK
     Dates: start: 20220101
  5. ESOMEPRAZOLE [Concomitant]
     Active Substance: ESOMEPRAZOLE
     Indication: Product used for unknown indication
     Dosage: 40
  6. LT4 [Concomitant]
     Indication: Product used for unknown indication
     Dosage: 88UG

REACTIONS (1)
  - Vitreous haemorrhage [Recovered/Resolved]

NARRATIVE: CASE EVENT DATE: 20240115
